FAERS Safety Report 19618004 (Version 1)
Quarter: 2021Q3

REPORT INFORMATION
  Report Type: Report from Study
  Country: DE (occurrence: DE)
  Receive Date: 20210728
  Receipt Date: 20210728
  Transmission Date: 20211014
  Serious: Yes (Hospitalization, Other)
  Sender: FDA-Public Use
  Company Number: NVSC2021DE167487

PATIENT
  Sex: Female

DRUGS (2)
  1. FLUOXETINE [Suspect]
     Active Substance: FLUOXETINE HYDROCHLORIDE
     Indication: DEPRESSION
     Dosage: UNK
     Route: 065
  2. VENLAFAXINE [Suspect]
     Active Substance: VENLAFAXINE HYDROCHLORIDE
     Indication: DEPRESSION
     Dosage: UNK
     Route: 065

REACTIONS (9)
  - Apathy [Unknown]
  - Weight increased [Unknown]
  - Suicide attempt [Unknown]
  - Emotional distress [Unknown]
  - Decreased interest [Unknown]
  - Major depression [Unknown]
  - Mood swings [Unknown]
  - Depressed mood [Unknown]
  - Drug effect less than expected [Unknown]
